FAERS Safety Report 20819753 (Version 2)
Quarter: 2022Q2

REPORT INFORMATION
  Report Type: Spontaneous
  Country: US (occurrence: None)
  Receive Date: 20220512
  Receipt Date: 20220521
  Transmission Date: 20220720
  Serious: Yes (Death)
  Sender: FDA-Public Use
  Company Number: US-ROCHE-3090443

PATIENT
  Age: 44 Year
  Sex: Female

DRUGS (1)
  1. PULMOZYME [Suspect]
     Active Substance: DORNASE ALFA
     Indication: Cystic fibrosis
     Dosage: 2.5 MG/2.5 ML
     Route: 055

REACTIONS (1)
  - Infective pulmonary exacerbation of cystic fibrosis [Fatal]

NARRATIVE: CASE EVENT DATE: 20220422
